FAERS Safety Report 7389202-2 (Version None)
Quarter: 2011Q2

REPORT INFORMATION
  Report Type: 
  Country: None (occurrence: None)
  Receive Date: 20110401
  Receipt Date: 20110330
  Transmission Date: 20111010
  Serious: Yes (Other)
  Sender: FDA-Public Use
  Company Number: NZ-PFIZER INC-2011072193

PATIENT
  Age: 56 Year
  Sex: Female

DRUGS (1)
  1. CHAMPIX [Suspect]
     Dosage: UNK
     Dates: start: 20110101

REACTIONS (8)
  - SOMNOLENCE [None]
  - DIZZINESS [None]
  - EMOTIONAL DISORDER [None]
  - NAUSEA [None]
  - TEARFULNESS [None]
  - ABNORMAL BEHAVIOUR [None]
  - AGGRESSION [None]
  - DEPENDENCE [None]
